FAERS Safety Report 6524831-7 (Version None)
Quarter: 2010Q1

REPORT INFORMATION
  Report Type: 
  Country: None (occurrence: None)
  Receive Date: 20100104
  Receipt Date: 20091204
  Transmission Date: 20100710
  Serious: No
  Sender: FDA-Public Use
  Company Number: US-BAYER-200832715NA

PATIENT
  Age: 60 Year
  Sex: Male

DRUGS (1)
  1. BETAPACE [Suspect]
     Indication: ATRIAL FIBRILLATION
     Dosage: TOTAL DAILY DOSE: 240 MG  UNIT DOSE: 120 MG

REACTIONS (1)
  - NO ADVERSE EVENT [None]
